FAERS Safety Report 11795188 (Version 2)
Quarter: 2017Q1

REPORT INFORMATION
  Report Type: Spontaneous
  Country: US (occurrence: US)
  Receive Date: 20151202
  Receipt Date: 20170224
  Transmission Date: 20170428
  Serious: Yes (Disabling, Other)
  Sender: FDA-Public Use
  Company Number: US-009507513-1511USA015796

PATIENT
  Sex: Female

DRUGS (1)
  1. SIMVASTATIN TABLETS, USP [Suspect]
     Active Substance: SIMVASTATIN
     Indication: PRODUCT USED FOR UNKNOWN INDICATION
     Dosage: 80 MG, UNK
     Route: 048

REACTIONS (10)
  - Muscle injury [Not Recovered/Not Resolved]
  - Asthenia [Not Recovered/Not Resolved]
  - Cardiomyopathy [Not Recovered/Not Resolved]
  - Musculoskeletal stiffness [Not Recovered/Not Resolved]
  - Muscle spasms [Not Recovered/Not Resolved]
  - Myalgia [Not Recovered/Not Resolved]
  - Muscle atrophy [Not Recovered/Not Resolved]
  - Hypotonic urinary bladder [Not Recovered/Not Resolved]
  - Tenderness [Not Recovered/Not Resolved]
  - Respiratory disorder [Not Recovered/Not Resolved]
